FAERS Safety Report 18156533 (Version 3)
Quarter: 2022Q4

REPORT INFORMATION
  Report Type: Report from Study
  Country: US (occurrence: US)
  Receive Date: 20200817
  Receipt Date: 20221229
  Transmission Date: 20230113
  Serious: No
  Sender: FDA-Public Use
  Company Number: US-PFIZER INC-2020317135

PATIENT
  Sex: Female

DRUGS (2)
  1. LYRICA [Suspect]
     Active Substance: PREGABALIN
     Indication: Lumbar spinal stenosis
     Dosage: 1 DOSAGE FORM, TID
     Route: 065
  2. ATORVASTATIN CALCIUM [Suspect]
     Active Substance: ATORVASTATIN CALCIUM
     Indication: Hyperlipidaemia
     Dosage: 1 DOSAGE FORM, QD (ONCE DAILY AT BEDTIME)
     Route: 065

REACTIONS (6)
  - Pain [Unknown]
  - Illness [Unknown]
  - Diabetic neuropathy [Unknown]
  - Memory impairment [Unknown]
  - Drug ineffective [Unknown]
  - Off label use [Unknown]
